FAERS Safety Report 26061777 (Version 1)
Quarter: 2025Q4

REPORT INFORMATION
  Report Type: Spontaneous
  Country: US (occurrence: US)
  Receive Date: 20251118
  Receipt Date: 20251118
  Transmission Date: 20260118
  Serious: No
  Sender: ROCHE
  Company Number: US-ROCHE-10000434493

PATIENT
  Age: 21 Year
  Sex: Female

DRUGS (2)
  1. XOLAIR PFS [Suspect]
     Active Substance: OMALIZUMAB
     Indication: Idiopathic urticaria
     Dosage: 300MG/2ML
     Route: 058
     Dates: start: 202208
  2. XOLAIR PFS [Suspect]
     Active Substance: OMALIZUMAB
     Dosage: 150MG/2ML
     Route: 058
     Dates: start: 202208

REACTIONS (2)
  - Urticaria [Unknown]
  - Drug ineffective [Unknown]
